FAERS Safety Report 9332958 (Version 1)
Quarter: 2013Q2

REPORT INFORMATION
  Report Type: Spontaneous
  Country: US (occurrence: None)
  Receive Date: 20130603
  Receipt Date: 20130603
  Transmission Date: 20140414
  Serious: Yes (Disabling, Other)
  Sender: FDA-Public Use
  Company Number: 2013AP005670

PATIENT
  Age: 91 Year
  Sex: Female

DRUGS (1)
  1. IMIQUIMOD [Suspect]
     Indication: BASAL CELL CARCINOMA
     Route: 061

REACTIONS (9)
  - Inflammation [None]
  - Delirium [None]
  - Overdose [None]
  - Inappropriate schedule of drug administration [None]
  - Insomnia [None]
  - Agitation [None]
  - Disturbance in attention [None]
  - Cognitive disorder [None]
  - Dementia [None]
